FAERS Safety Report 15541272 (Version 1)
Quarter: 2018Q4

REPORT INFORMATION
  Report Type: Report from Study
  Country: ES (occurrence: ES)
  Receive Date: 20181023
  Receipt Date: 20181023
  Transmission Date: 20190205
  Serious: Yes (Hospitalization, Other)
  Sender: FDA-Public Use
  Company Number: ES-TEVA-2018-ES-967718

PATIENT
  Age: 90 Year
  Sex: Female

DRUGS (4)
  1. METILPREDNISOLONA (888A) [Concomitant]
     Active Substance: METHYLPREDNISOLONE
     Dosage: HOSPITAL EMERGENCIES SINGLE DOSE
     Route: 042
     Dates: start: 20171122, end: 20171122
  2. FUROSEMIDA (1615A) [Concomitant]
     Active Substance: FUROSEMIDE
     Dosage: HOSPITAL EMERGENCIES SINGLE DOSE
     Route: 042
     Dates: start: 20171122, end: 20171122
  3. IPRATROPIO (1067A) [Suspect]
     Active Substance: IPRATROPIUM BROMIDE
     Indication: DYSPNOEA
     Dosage: IN THE HOSPITAL EMERGENCY DEPARTMENT, SINGLE DOSE (ATROVENT), ADMITTED ADMINISTERING EVERY 8 HOURS (
     Route: 055
     Dates: start: 20171122, end: 20171128
  4. SALBUAIR 5 MG SOLUCION PARA INHALACION POR NEBULIZADOR [Suspect]
     Active Substance: ALBUTEROL SULFATE
     Indication: DYSPNOEA
     Dosage: HOSPITAL EMERGENCIES SINGLE DOSE
     Route: 055
     Dates: start: 20171122, end: 20171122

REACTIONS (1)
  - Atrial fibrillation [Unknown]

NARRATIVE: CASE EVENT DATE: 20171122
